FAERS Safety Report 4856917-7 (Version None)
Quarter: 2005Q4

REPORT INFORMATION
  Report Type: 
  Country: None (occurrence: None)
  Receive Date: 20051219
  Receipt Date: 20050207
  Transmission Date: 20060501
  Serious: No
  Sender: FDA-Public Use
  Company Number: US-GLAXOSMITHKLINE-A0544163A

PATIENT
  Age: 62 Year
  Sex: Female

DRUGS (19)
  1. NICODERM CQ [Suspect]
     Dates: end: 20050205
  2. EQUATE NTS 7MG [Suspect]
  3. ACTONEL [Concomitant]
  4. DIGOXIN [Concomitant]
  5. LASIX [Concomitant]
  6. RANITIDINE [Concomitant]
  7. POTASSIUM [Concomitant]
  8. ZOCOR [Concomitant]
  9. ASPIRIN [Concomitant]
  10. ADVAIR DISKUS 250/50 [Concomitant]
  11. CARDIZEM [Concomitant]
  12. SPIRIVA [Concomitant]
  13. ALBUTEROL [Concomitant]
  14. CALCIUM GLUCONATE [Concomitant]
  15. ACCUPRIL [Concomitant]
  16. MULTI-VITAMIN [Concomitant]
  17. PLAVIX [Concomitant]
  18. NITROLINGUAL [Concomitant]
  19. MAGNESIUM [Concomitant]

REACTIONS (1)
  - PRURITUS GENERALISED [None]
